FAERS Safety Report 17591608 (Version 1)
Quarter: 2020Q1

REPORT INFORMATION
  Report Type: Spontaneous
  Country: US (occurrence: US)
  Receive Date: 20200326
  Receipt Date: 20200326
  Transmission Date: 20200409
  Serious: Yes (Hospitalization)
  Sender: FDA-Public Use
  Company Number: None

PATIENT
  Sex: Male

DRUGS (1)
  1. SPRYCEL [Suspect]
     Active Substance: DASATINIB
     Indication: CHRONIC MYELOID LEUKAEMIA
     Route: 048
     Dates: start: 20200310

REACTIONS (7)
  - Haemoglobin increased [None]
  - Emotional distress [None]
  - Dyspnoea [None]
  - Pneumonia [None]
  - Therapy cessation [None]
  - Ulcer haemorrhage [None]
  - Oxygen consumption increased [None]
